FAERS Safety Report 4624184-5 (Version None)
Quarter: 2005Q1

REPORT INFORMATION
  Report Type: 
  Country: None (occurrence: None)
  Receive Date: 20050331
  Receipt Date: 20050322
  Transmission Date: 20050727
  Serious: Yes (Other)
  Sender: FDA-Public Use
  Company Number: NL-GLAXOSMITHKLINE-B0376234A

PATIENT
  Age: 45 Year
  Sex: Female

DRUGS (1)
  1. FLUTICASONE PROPIONATE + SALMETEROL XINAFOATE [Suspect]
     Indication: ILL-DEFINED DISORDER
     Route: 065
     Dates: start: 20050310

REACTIONS (1)
  - VAGINAL HAEMORRHAGE [None]
